FAERS Safety Report 4390125-1 (Version None)
Quarter: 2004Q2

REPORT INFORMATION
  Report Type: 
  Country: None (occurrence: None)
  Receive Date: 20040630
  Receipt Date: 20040624
  Transmission Date: 20050107
  Serious: Yes (Other)
  Sender: FDA-Public Use
  Company Number: 2004211481US

PATIENT
  Age: 29 Year
  Sex: Male

DRUGS (4)
  1. ZYVOX [Suspect]
     Indication: OSTEOMYELITIS
     Dosage: 600 MG, BID, ORAL
     Route: 048
     Dates: start: 20040413, end: 20040429
  2. TRAMADOL HCL [Suspect]
     Indication: PAIN
  3. CITALOPRAM [Suspect]
     Dosage: 10 MG, QD
  4. CELEXA [Concomitant]

REACTIONS (9)
  - AGITATION [None]
  - ANXIETY [None]
  - DRUG INTERACTION [None]
  - HYPERTENSION [None]
  - MEDICATION ERROR [None]
  - PSYCHOMOTOR HYPERACTIVITY [None]
  - SEROTONIN SYNDROME [None]
  - TACHYCARDIA [None]
  - TREMOR [None]
